FAERS Safety Report 9713391 (Version 2)
Quarter: 2013Q4

REPORT INFORMATION
  Report Type: Spontaneous
  Country: GB (occurrence: GB)
  Receive Date: 20131126
  Receipt Date: 20131126
  Transmission Date: 20140711
  Serious: Yes (Death, Hospitalization, Other)
  Sender: FDA-Public Use
  Company Number: GB-ABBVIE-13P-167-1125300-00

PATIENT
  Age: 52 Year
  Sex: Male
  Weight: 56.9 kg

DRUGS (28)
  1. NORVIR [Suspect]
     Indication: HIV INFECTION
     Route: 048
  2. BRENTUXIMAB VEDOTIN [Interacting]
     Indication: HODGKIN^S DISEASE
     Route: 042
     Dates: start: 20130612, end: 20130612
  3. ADCETRIS [Suspect]
     Indication: HODGKIN^S DISEASE
     Dates: start: 20130612
  4. FLUCONAZOLE [Concomitant]
     Indication: PROPHYLAXIS
     Route: 048
  5. CO-TRIMOXAZOLE [Concomitant]
     Indication: PRODUCT USED FOR UNKNOWN INDICATION
  6. ALLOPURINOL [Concomitant]
     Indication: PROPHYLAXIS
     Route: 048
  7. MOVICOL [Concomitant]
     Indication: PRODUCT USED FOR UNKNOWN INDICATION
  8. ETRAVIRINE [Concomitant]
     Indication: HIV INFECTION
     Route: 048
  9. LAMIVUDINE [Concomitant]
     Indication: HIV INFECTION
     Route: 048
  10. RALTEGRAVIR [Concomitant]
     Indication: PRODUCT USED FOR UNKNOWN INDICATION
     Route: 048
  11. DARUNAVIR [Concomitant]
     Indication: HIV INFECTION
     Route: 048
  12. ACYCLOVIR [Concomitant]
     Indication: HIV INFECTION
  13. ATORVASTATIN [Concomitant]
     Indication: PRODUCT USED FOR UNKNOWN INDICATION
  14. MARAVIROC [Concomitant]
     Indication: HIV INFECTION
     Route: 048
  15. GLICLAZIDE [Concomitant]
     Indication: BLOOD GLUCOSE INCREASED
     Route: 065
  16. AZATHIOPRINE [Concomitant]
     Indication: PRODUCT USED FOR UNKNOWN INDICATION
  17. SULFAMETHOXAZOLE [Concomitant]
     Indication: PROPHYLAXIS
     Route: 048
  18. MACROGOL [Concomitant]
     Indication: PRODUCT USED FOR UNKNOWN INDICATION
  19. DEXAMETHASONE [Concomitant]
     Indication: PRODUCT USED FOR UNKNOWN INDICATION
     Route: 065
  20. HUMAN INSULATARD [Concomitant]
     Indication: BLOOD GLUCOSE INCREASED
     Route: 058
     Dates: start: 20130706
  21. OMEPRAZOLE [Concomitant]
     Indication: GASTROINTESTINAL DISORDER
     Route: 048
  22. HALOPERIDOL [Concomitant]
     Indication: PRODUCT USED FOR UNKNOWN INDICATION
     Route: 048
     Dates: start: 20130703
  23. DOMPERIDONE [Concomitant]
     Indication: ANTIEMETIC SUPPORTIVE CARE
     Route: 048
  24. ONDANSETRON [Concomitant]
     Indication: ANTIEMETIC SUPPORTIVE CARE
     Route: 048
  25. CYCLIZINE [Concomitant]
     Indication: ANTIEMETIC SUPPORTIVE CARE
     Route: 048
  26. PIPERACILLIN AND TAZOBACTAM [Concomitant]
     Indication: ANTIBIOTIC PROPHYLAXIS
     Route: 042
     Dates: start: 20130703
  27. BACLOFEN [Concomitant]
     Indication: PRODUCT USED FOR UNKNOWN INDICATION
     Route: 048
     Dates: start: 20130703
  28. RANITIDINE [Concomitant]
     Indication: PRODUCT USED FOR UNKNOWN INDICATION
     Route: 048
     Dates: start: 20130624

REACTIONS (16)
  - Renal failure acute [Fatal]
  - Drug interaction [Fatal]
  - General physical health deterioration [Fatal]
  - Nephrolithiasis [Fatal]
  - Oedema [Fatal]
  - Pancreatitis [Fatal]
  - Pathogen resistance [Fatal]
  - Sepsis [Fatal]
  - Diabetic hyperosmolar coma [Fatal]
  - Hyponatraemia [Fatal]
  - Asthenia [Fatal]
  - Vomiting [Fatal]
  - Hyperglycaemia [Fatal]
  - Fatigue [Fatal]
  - Nausea [Fatal]
  - Pyrexia [Fatal]
